FAERS Safety Report 26131706 (Version 1)
Quarter: 2025Q4

REPORT INFORMATION
  Report Type: Spontaneous
  Country: US (occurrence: US)
  Receive Date: 20251208
  Receipt Date: 20251208
  Transmission Date: 20260117
  Serious: Yes (Hospitalization)
  Sender: BAYER HEALTHCARE PHARMACEUTICALS INC.
  Company Number: US-BAYER-2025A161274

PATIENT
  Age: 24 Year
  Sex: Female

DRUGS (8)
  1. MIRENA [Suspect]
     Active Substance: LEVONORGESTREL
     Indication: Contraception
     Dosage: 20?G/DAY
     Route: 015
     Dates: start: 20251107
  2. EPIPEN [Concomitant]
     Active Substance: EPINEPHRINE
     Indication: Urticaria
     Dosage: UNK
     Dates: start: 2025
  3. EPIPEN [Concomitant]
     Active Substance: EPINEPHRINE
     Indication: Pruritus
  4. EPIPEN [Concomitant]
     Active Substance: EPINEPHRINE
     Indication: Throat tightness
  5. EPIPEN [Concomitant]
     Active Substance: EPINEPHRINE
     Indication: Swollen tongue
  6. EPIPEN [Concomitant]
     Active Substance: EPINEPHRINE
     Indication: Lacrimation increased
  7. BENADRYL [Concomitant]
     Active Substance: DIPHENHYDRAMINE HYDROCHLORIDE
     Dosage: UNK
     Dates: start: 20251202
  8. PREDNISONE [Concomitant]
     Active Substance: PREDNISONE
     Dosage: UNK
     Dates: start: 20251202

REACTIONS (6)
  - Device allergy [None]
  - Pruritus [None]
  - Throat tightness [None]
  - Swollen tongue [None]
  - Lacrimation increased [None]
  - Vomiting [Recovered/Resolved]

NARRATIVE: CASE EVENT DATE: 20250101
